FAERS Safety Report 4263934-7 (Version None)
Quarter: 2004Q1

REPORT INFORMATION
  Report Type: 
  Country: None (occurrence: None)
  Receive Date: 20040102
  Receipt Date: 20031204
  Transmission Date: 20041129
  Serious: Yes (Hospitalization, Disabling)
  Sender: FDA-Public Use
  Company Number: B0071654A

PATIENT
  Age: 30 Year
  Sex: Female

DRUGS (4)
  1. ZOVIRAX [Suspect]
     Indication: ENCEPHALITIS VIRAL
     Dosage: 250 MG/FOUR TIMES PER DAY/INTRAV
     Route: 042
     Dates: start: 19990526, end: 19990601
  2. ZOVIRAX [Suspect]
     Indication: ENCEPHALITIS VIRAL
     Dosage: 800 MG/THREE TIMES PER DAY/ORAL
     Route: 048
     Dates: start: 19990602, end: 19990616
  3. ME-PREDNISOLONE NA SUCC. [Concomitant]
  4. PREDNISOLONE [Concomitant]

REACTIONS (10)
  - ABNORMAL BEHAVIOUR [None]
  - CONVULSION [None]
  - DRUG INEFFECTIVE [None]
  - DYSARTHRIA [None]
  - DYSPHONIA [None]
  - ENCEPHALITIS [None]
  - HALLUCINATIONS, MIXED [None]
  - MENINGITIS [None]
  - NUCLEAR MAGNETIC RESONANCE IMAGING ABNORMAL [None]
  - PAIN [None]
